FAERS Safety Report 9419775 (Version 1)
Quarter: 2013Q3

REPORT INFORMATION
  Report Type: Spontaneous
  Country: US (occurrence: None)
  Receive Date: 20130723
  Receipt Date: 20130723
  Transmission Date: 20140515
  Serious: Yes (Other)
  Sender: FDA-Public Use
  Company Number: 2013TP000415

PATIENT
  Age: 79 Year
  Sex: Female

DRUGS (2)
  1. LIDODERM (5 PCT) [Suspect]
     Indication: BACK PAIN
     Dosage: 1 PATCH; PRN; TOP
     Route: 061
     Dates: start: 2006, end: 20130715
  2. CARDIOVASCULAR SYSTEM DRUGS [Concomitant]

REACTIONS (6)
  - Carpal tunnel decompression [None]
  - Hip surgery [None]
  - Pruritus [None]
  - Pain in extremity [None]
  - Drug ineffective [None]
  - Muscle spasms [None]
